FAERS Safety Report 6870682-3 (Version None)
Quarter: 2010Q3

REPORT INFORMATION
  Report Type: 
  Country: None (occurrence: None)
  Receive Date: 20100723
  Receipt Date: 20091012
  Transmission Date: 20110219
  Serious: No
  Sender: FDA-Public Use
  Company Number: A0811393A

PATIENT
  Age: 80 Year
  Sex: Female

DRUGS (3)
  1. DYAZIDE [Suspect]
     Indication: HYPERTENSION
     Dosage: 1CAP PER DAY
     Route: 048
     Dates: start: 20091001
  2. COREG CR [Concomitant]
  3. VITAMIN D [Concomitant]

REACTIONS (4)
  - PRURITUS [None]
  - RASH [None]
  - URTICARIA [None]
  - WEIGHT DECREASED [None]
